FAERS Safety Report 7588648-7 (Version None)
Quarter: 2011Q3

REPORT INFORMATION
  Report Type: 
  Country: None (occurrence: None)
  Receive Date: 20110705
  Receipt Date: 20110524
  Transmission Date: 20111222
  Serious: Yes (Hospitalization, Other)
  Sender: FDA-Public Use
  Company Number: US-BAYER-2010-002475

PATIENT
  Age: 26 Year
  Sex: Female
  Weight: 68.027 kg

DRUGS (20)
  1. DEPAKOTE [Concomitant]
     Dosage: UNK
     Dates: start: 20070101
  2. PREVACID [Concomitant]
     Indication: GASTROOESOPHAGEAL REFLUX DISEASE
  3. FIORICET W/ CODEINE [Concomitant]
     Indication: MIGRAINE
     Dosage: UNK
     Dates: start: 20070101
  4. ASCORBIC ACID [Concomitant]
     Dosage: UNK
     Dates: start: 20000101
  5. IBUPROFEN [Concomitant]
  6. CELEBREX [Concomitant]
  7. ASPIRIN [Concomitant]
  8. AZULFIDINE [Concomitant]
     Indication: ARTHRITIS
     Dosage: UNK
     Dates: start: 20010101, end: 20080101
  9. YAZ [Suspect]
     Indication: CONTRACEPTION
     Dosage: UNK
     Dates: start: 20070101, end: 20090101
  10. ZITHROMAX [Concomitant]
     Dosage: UNK
     Dates: start: 19830101
  11. ALLEGRA [Concomitant]
     Indication: MULTIPLE ALLERGIES
     Dosage: UNK
     Dates: start: 19950101
  12. PROTONIX [Concomitant]
     Dosage: UNK UNK, BID
     Dates: start: 20080101
  13. FLOVENT [Concomitant]
     Dosage: UNK
     Dates: start: 20000101
  14. ADVAIR DISKUS 100/50 [Concomitant]
     Indication: ASTHMA
  15. ACIPHEX [Concomitant]
     Indication: GASTROOESOPHAGEAL REFLUX DISEASE
     Dosage: UNK
     Dates: start: 20080101, end: 20090101
  16. LAMICTAL [Concomitant]
     Dosage: UNK
     Dates: start: 20070101
  17. NAPROSYN [Concomitant]
  18. MOBIC [Concomitant]
  19. FLOVENT [Concomitant]
     Indication: ASTHMA
     Dosage: UNK
     Dates: start: 19950101, end: 20101201
  20. SINGULAIR [Concomitant]
     Indication: ASTHMA
     Dosage: UNK
     Dates: start: 20040101

REACTIONS (10)
  - CONVULSION [None]
  - VOMITING [None]
  - MENTAL DISORDER [None]
  - DEPRESSION [None]
  - DIARRHOEA [None]
  - BILIARY DYSKINESIA [None]
  - ANXIETY [None]
  - ABDOMINAL PAIN [None]
  - GALLBLADDER NON-FUNCTIONING [None]
  - NAUSEA [None]
